FAERS Safety Report 6637382-6 (Version None)
Quarter: 2010Q1

REPORT INFORMATION
  Report Type: 
  Country: None (occurrence: None)
  Receive Date: 20100311
  Receipt Date: 20100224
  Transmission Date: 20100710
  Serious: Yes (Hospitalization, Other)
  Sender: FDA-Public Use
  Company Number: THQ2010A00295

PATIENT
  Age: 61 Year
  Sex: Male

DRUGS (8)
  1. ACTOS [Suspect]
     Indication: TYPE 2 DIABETES MELLITUS
     Dosage: 30 MG (30 MG, 1 IN 1 D), PER ORAL
     Route: 048
     Dates: start: 20090721, end: 20100205
  2. METFORMIN HYDROCHLORIDE [Concomitant]
  3. MICARDIS HCT [Concomitant]
  4. LEKOPTIN (VERAPAMIL HYDROCHLORIDE) [Concomitant]
  5. APO-DICLO /00372302/ (DICLOFENAC SODIUM) [Concomitant]
  6. OMEPRAZOLE [Concomitant]
  7. SULFASALAZINE [Concomitant]
  8. CORTICOSTEROIDS [Concomitant]

REACTIONS (12)
  - BLOOD CALCIUM DECREASED [None]
  - BLOOD OSMOLARITY DECREASED [None]
  - BLOOD PRESSURE INCREASED [None]
  - BRAIN SCAN ABNORMAL [None]
  - FALL [None]
  - HEAD INJURY [None]
  - HYPOCHLORAEMIA [None]
  - HYPOKALAEMIA [None]
  - HYPONATRAEMIA [None]
  - INAPPROPRIATE ANTIDIURETIC HORMONE SECRETION [None]
  - OSMOTIC DEMYELINATION SYNDROME [None]
  - SYNCOPE [None]
